APPROVED DRUG PRODUCT: SCOPOLAMINE
Active Ingredient: SCOPOLAMINE
Strength: 1MG/72HR
Dosage Form/Route: SYSTEM;TRANSDERMAL
Application: A218384 | Product #001 | TE Code: AB
Applicant: AMNEAL PHARMACEUTICALS LLC
Approved: Jun 9, 2025 | RLD: No | RS: No | Type: RX